FAERS Safety Report 13966942 (Version 1)
Quarter: 2017Q3

REPORT INFORMATION
  Report Type: Spontaneous
  Country: CA (occurrence: CA)
  Receive Date: 20170914
  Receipt Date: 20170914
  Transmission Date: 20171128
  Serious: Yes (Disabling)
  Sender: FDA-Public Use
  Company Number: CA-CONCORDIA PHARMACEUTICALS INC.-GSH201709-005131

PATIENT
  Age: 64 Year
  Sex: Female

DRUGS (1)
  1. PLAQUENIL [Suspect]
     Active Substance: HYDROXYCHLOROQUINE SULFATE
     Indication: RHEUMATOID ARTHRITIS
     Route: 048
     Dates: end: 20140708

REACTIONS (3)
  - Visual impairment [Unknown]
  - Cataract [Unknown]
  - Vision blurred [Unknown]

NARRATIVE: CASE EVENT DATE: 2013
